FAERS Safety Report 5927895-4 (Version None)
Quarter: 2008Q4

REPORT INFORMATION
  Report Type: 
  Country: None (occurrence: None)
  Receive Date: 20081023
  Receipt Date: 20081015
  Transmission Date: 20090506
  Serious: Yes (Other)
  Sender: FDA-Public Use
  Company Number: JP-ASTRAZENECA-2008AP08085

PATIENT
  Age: 36 Year
  Sex: Female
  Weight: 54 kg

DRUGS (3)
  1. MARCAINE [Suspect]
     Indication: SPINAL ANAESTHESIA
     Route: 024
  2. MARCAINE [Suspect]
     Indication: CAESAREAN SECTION
     Route: 024
  3. MORPHINE HCL ELIXIR [Concomitant]
     Indication: SPINAL ANAESTHESIA
     Route: 065

REACTIONS (1)
  - ATRIOVENTRICULAR BLOCK COMPLETE [None]
